FAERS Safety Report 25581389 (Version 1)
Quarter: 2025Q3

REPORT INFORMATION
  Report Type: Spontaneous
  Country: US (occurrence: US)
  Receive Date: 20250718
  Receipt Date: 20250718
  Transmission Date: 20251020
  Serious: No
  Sender: NOVO NORDISK
  Company Number: US-NOVOPROD-1378664

PATIENT
  Age: 31 Year
  Sex: Female

DRUGS (1)
  1. WEGOVY [Suspect]
     Active Substance: SEMAGLUTIDE
     Indication: Obesity
     Dosage: 1 MG, QW
     Dates: start: 20240803

REACTIONS (4)
  - Skin reaction [Unknown]
  - Paraesthesia [Not Recovered/Not Resolved]
  - Sensitive skin [Unknown]
  - Burning sensation [Unknown]

NARRATIVE: CASE EVENT DATE: 20241001
